FAERS Safety Report 23286777 (Version 1)
Quarter: 2023Q4

REPORT INFORMATION
  Report Type: Spontaneous
  Country: US (occurrence: US)
  Receive Date: 20231212
  Receipt Date: 20231212
  Transmission Date: 20240110
  Serious: No
  Sender: FDA-Public Use
  Company Number: US-BRISTOL-MYERS SQUIBB COMPANY-2023-174522

PATIENT
  Age: 48 Year
  Sex: Female
  Weight: 61.23 kg

DRUGS (2)
  1. ELIQUIS [Suspect]
     Active Substance: APIXABAN
     Indication: Thrombosis
     Route: 048
     Dates: start: 20231122
  2. ELIQUIS [Suspect]
     Active Substance: APIXABAN
     Route: 048

REACTIONS (5)
  - Nausea [Unknown]
  - Asthenia [Unknown]
  - Headache [Unknown]
  - Muscular weakness [Unknown]
  - Dizziness [Unknown]
